FAERS Safety Report 13051054 (Version 1)
Quarter: 2016Q4

REPORT INFORMATION
  Report Type: Spontaneous
  Country: US (occurrence: US)
  Receive Date: 20161221
  Receipt Date: 20161221
  Transmission Date: 20170207
  Serious: No
  Sender: FDA-Public Use
  Company Number: US-PFIZER INC-2016586600

PATIENT
  Age: 76 Year
  Sex: Female
  Weight: 52 kg

DRUGS (4)
  1. LETROZOLE. [Concomitant]
     Active Substance: LETROZOLE
     Dosage: 2.5 MG, 1X/DAY, ONCE
  2. IBRANCE [Suspect]
     Active Substance: PALBOCICLIB
     Indication: BREAST CANCER METASTATIC
     Dosage: 175 MG, 1X/DAY
     Route: 048
     Dates: start: 201511
  3. IBRANCE [Suspect]
     Active Substance: PALBOCICLIB
     Dosage: 75 MG, 1X/DAY, FOR 21 DAYS AND THEN SHE WENT OFF OF IT FOR 2 WEEKS
     Route: 048
     Dates: start: 201511
  4. IBRANCE [Suspect]
     Active Substance: PALBOCICLIB
     Dosage: 125 MG, 1X/DAY
     Route: 048
     Dates: start: 201511

REACTIONS (7)
  - Tremor [Unknown]
  - Lip pain [Unknown]
  - Alopecia [Unknown]
  - Stomatitis [Not Recovered/Not Resolved]
  - Oral herpes [Unknown]
  - Product use issue [Unknown]
  - Chapped lips [Unknown]

NARRATIVE: CASE EVENT DATE: 201601
